FAERS Safety Report 7083172-2 (Version None)
Quarter: 2010Q4

REPORT INFORMATION
  Report Type: 
  Country: None (occurrence: None)
  Receive Date: 20101027
  Receipt Date: 20101019
  Transmission Date: 20110411
  Serious: Yes (Death)
  Sender: FDA-Public Use
  Company Number: 2010MA003835

PATIENT
  Age: 71 Year
  Sex: Female

DRUGS (7)
  1. VINORELBINE [Suspect]
     Indication: NON-SMALL CELL LUNG CANCER
     Dosage: 25 MG; IV
     Route: 042
     Dates: start: 20091027, end: 20100928
  2. CISPLATIN [Suspect]
     Indication: NON-SMALL CELL LUNG CANCER
     Dosage: 75 MG; IV
     Route: 042
     Dates: start: 20091027, end: 20100928
  3. DEXAMETHASONE ELIXIN [Concomitant]
  4. ONDANSETRON [Concomitant]
  5. ATENOLOL [Concomitant]
  6. OMEPRAZOLE [Concomitant]
  7. IRBESARTAN [Concomitant]

REACTIONS (1)
  - RENAL FAILURE ACUTE [None]
